FAERS Safety Report 5236443-6 (Version None)
Quarter: 2007Q1

REPORT INFORMATION
  Report Type: 
  Country: None (occurrence: None)
  Receive Date: 20070208
  Receipt Date: 20070125
  Transmission Date: 20070707
  Serious: Yes (Hospitalization)
  Sender: FDA-Public Use
  Company Number: GXKR2006NL05972

PATIENT
  Age: 68 Year
  Sex: Male
  Weight: 80 kg

DRUGS (3)
  1. SIMVASTATIN (NGX)(SIMVASTATIN) TABLET, 20MG [Suspect]
     Indication: HYPERTENSION
     Dosage: 20 MG/DAY, ORAL
     Route: 048
     Dates: start: 20040116
  2. METOPROLOL TARTRATE [Suspect]
     Indication: HYPERTENSION
     Dosage: ORAL
     Route: 048
     Dates: start: 20050116
  3. PERINDOPRIL ERBUMINE [Suspect]
     Indication: HYPERTENSION
     Dosage: ORAL
     Route: 048
     Dates: start: 20050116

REACTIONS (1)
  - PLEURISY [None]
